FAERS Safety Report 8174917-9 (Version None)
Quarter: 2012Q1

REPORT INFORMATION
  Report Type: 
  Country: None (occurrence: None)
  Receive Date: 20120229
  Receipt Date: 20110721
  Transmission Date: 20120608
  Serious: No
  Sender: FDA-Public Use
  Company Number: US-GLAXOSMITHKLINE-A0937577A

PATIENT
  Age: 40 Year
  Sex: Female

DRUGS (3)
  1. VALACYCLOVIR [Suspect]
     Indication: HERPES VIRUS INFECTION
     Dosage: 1000MG PER DAY
     Route: 048
     Dates: start: 20110717
  2. MIRCETTE [Concomitant]
  3. MULTIPLE VITAMIN [Concomitant]

REACTIONS (3)
  - DIZZINESS [None]
  - NAUSEA [None]
  - HEADACHE [None]
